FAERS Safety Report 19723468 (Version 2)
Quarter: 2022Q2

REPORT INFORMATION
  Report Type: Report from Study
  Country: US (occurrence: US)
  Receive Date: 20210820
  Receipt Date: 20220527
  Transmission Date: 20220721
  Serious: Yes (Other)
  Sender: FDA-Public Use
  Company Number: US-ACADIA PHARMACEUTICALS INC.-ACA-2021-PIM-002953

PATIENT
  Age: 87 Year
  Sex: Female

DRUGS (3)
  1. NUPLAZID [Suspect]
     Active Substance: PIMAVANSERIN TARTRATE
     Indication: Dementia
     Dosage: 20 MILLIGRAM, QD
     Route: 048
     Dates: start: 20201224
  2. NUPLAZID [Suspect]
     Active Substance: PIMAVANSERIN TARTRATE
     Indication: Parkinson^s disease
     Dosage: 34 MILLIGRAM, QD
     Route: 048
     Dates: start: 202012
  3. DONEPEZIL [Suspect]
     Active Substance: DONEPEZIL

REACTIONS (3)
  - Intentional self-injury [Unknown]
  - Salivary hypersecretion [Unknown]
  - Off label use [Unknown]

NARRATIVE: CASE EVENT DATE: 20201224
